FAERS Safety Report 12928587 (Version 1)
Quarter: 2016Q4

REPORT INFORMATION
  Report Type: Report from Study
  Country: US (occurrence: US)
  Receive Date: 20161110
  Receipt Date: 20161110
  Transmission Date: 20170207
  Serious: Yes (Hospitalization)
  Sender: FDA-Public Use
  Company Number: US-ACCORD-045355

PATIENT
  Age: 26 Year
  Sex: Female

DRUGS (2)
  1. DIAZEPAM. [Suspect]
     Active Substance: DIAZEPAM
     Indication: RILEY-DAY SYNDROME
     Route: 042
  2. DEXMEDETOMIDINE. [Suspect]
     Active Substance: DEXMEDETOMIDINE
     Indication: RILEY-DAY SYNDROME
     Dosage: STARTING RATE OF 2 MCG/KG/H?AVERAGE RATE OF 0.44 MCG/KG/H ?MAXIMUM RATE AT 2.5 MCG/KG/H
     Route: 042

REACTIONS (2)
  - Sedation [Unknown]
  - Off label use [Unknown]
